FAERS Safety Report 6308421-7 (Version None)
Quarter: 2009Q3

REPORT INFORMATION
  Report Type: 
  Country: None (occurrence: None)
  Receive Date: 20090813
  Receipt Date: 20090323
  Transmission Date: 20100115
  Serious: Yes (Death, Life-Threatening, Hospitalization)
  Sender: FDA-Public Use
  Company Number: JP-ABBOTT-09P-087-0590526-00

PATIENT
  Age: 22 Year
  Sex: Female
  Weight: 58 kg

DRUGS (29)
  1. CLARITHROMYCIN [Suspect]
     Indication: OTITIS MEDIA ACUTE
     Route: 048
     Dates: start: 20090117, end: 20090119
  2. MEIACT [Suspect]
     Indication: OTITIS MEDIA ACUTE
     Route: 048
     Dates: start: 20090108, end: 20090117
  3. MEIACT [Suspect]
     Route: 048
     Dates: start: 20090119, end: 20090121
  4. CALONAL [Suspect]
     Indication: ANALGESIA
     Route: 048
     Dates: start: 20090107
  5. FLOMOX [Suspect]
     Indication: OTITIS MEDIA ACUTE
     Route: 048
     Dates: start: 20090107, end: 20090108
  6. DASEN [Suspect]
     Indication: OTITIS MEDIA ACUTE
     Route: 048
     Dates: start: 20090107, end: 20090110
  7. DASEN [Suspect]
     Route: 048
     Dates: start: 20090117, end: 20090119
  8. NIPOLAZIN [Suspect]
     Indication: RHINITIS ALLERGIC
     Route: 048
     Dates: start: 20090107, end: 20090119
  9. RINDERON [Suspect]
     Indication: OTITIS MEDIA ACUTE
     Route: 048
     Dates: start: 20090108, end: 20090117
  10. RINDERON [Suspect]
     Indication: DRUG ERUPTION
     Route: 048
     Dates: start: 20090117, end: 20090119
  11. RINDERON [Suspect]
     Route: 048
     Dates: start: 20090119, end: 20090122
  12. RINDERON [Suspect]
     Route: 048
     Dates: start: 20090123, end: 20090125
  13. GASLON N [Suspect]
     Indication: PROPHYLAXIS AGAINST GASTROINTESTINAL ULCER
     Route: 048
     Dates: start: 20090108, end: 20090122
  14. CYANOCOBALAMIN [Suspect]
     Indication: LABYRINTHITIS
     Route: 048
     Dates: start: 20090119, end: 20090122
  15. TSUMURA SAIREITO EXTRACT GRANULE [Suspect]
     Indication: DRUG ERUPTION
     Route: 048
     Dates: start: 20090122, end: 20090123
  16. PREDONINE [Suspect]
     Indication: DRUG ERUPTION
     Route: 048
     Dates: start: 20090122, end: 20090123
  17. CELESTAMINE TAB [Suspect]
     Indication: DRUG ERUPTION
     Dosage: BETAMETHASONE 0.25 MG/CHLORPHENIRAMINE 2 MG
     Route: 048
     Dates: start: 20090122, end: 20090123
  18. MUCOSTA [Suspect]
     Indication: DRUG ERUPTION
     Route: 048
     Dates: start: 20090123, end: 20090125
  19. ALLELOCK [Suspect]
     Indication: DRUG ERUPTION
     Route: 048
     Dates: start: 20090123, end: 20090125
  20. SOL MEDROL [Concomitant]
     Route: 042
     Dates: start: 20090125, end: 20090127
  21. FRESH FROZEN PLASMA [Concomitant]
     Dosage: TOTAL 120 UNITS
     Route: 042
     Dates: start: 20090130, end: 20090201
  22. FRESH FROZEN PLASMA [Concomitant]
     Dosage: TOTAL 9 UNITS
     Route: 042
     Dates: start: 20090214, end: 20090224
  23. FRESH FROZEN PLASMA [Concomitant]
     Dosage: TOTAL 15 UNITS
     Route: 042
     Dates: start: 20090225, end: 20090306
  24. FRESH FROZEN PLASMA [Concomitant]
     Dosage: TOTAL 64 UNITS
     Route: 042
     Dates: start: 20090307, end: 20090310
  25. MAP (RED CELL CONCENTRATES MANNITOL ADENINE PHOSPHATE) [Concomitant]
     Dosage: TOTAL 4 UNITS
     Route: 042
     Dates: start: 20090214, end: 20090224
  26. MAP (RED CELL CONCENTRATES MANNITOL ADENINE PHOSPHATE) [Concomitant]
     Dosage: TOTAL 16 UNITS
     Route: 042
     Dates: start: 20090225, end: 20090306
  27. MAP (RED CELL CONCENTRATES MANNITOL ADENINE PHOSPHATE) [Concomitant]
     Dosage: TOTAL 8 UNITS
     Route: 042
     Dates: start: 20090307, end: 20090310
  28. PLATE [Concomitant]
     Dosage: TOTAL 85 UNITS
     Route: 042
     Dates: start: 20090225, end: 20090306
  29. PLATE [Concomitant]
     Dosage: TOTAL 85 UNITS
     Route: 042
     Dates: start: 20090307, end: 20090310

REACTIONS (2)
  - TOXIC EPIDERMAL NECROLYSIS [None]
  - TRANSFUSION-RELATED ACUTE LUNG INJURY [None]
